FAERS Safety Report 17345006 (Version 1)
Quarter: 2020Q1

REPORT INFORMATION
  Report Type: Spontaneous
  Country: US (occurrence: US)
  Receive Date: 20200129
  Receipt Date: 20200129
  Transmission Date: 20200409
  Serious: No
  Sender: FDA-Public Use
  Company Number: US-ALLERGAN-1950864US

PATIENT
  Sex: Female

DRUGS (1)
  1. BOTOX COSMETIC [Suspect]
     Active Substance: ONABOTULINUMTOXINA
     Indication: FACE LIFT
     Dosage: UNK, SINGLE
     Dates: start: 20191204, end: 20191204

REACTIONS (5)
  - Dysphagia [Not Recovered/Not Resolved]
  - Throat tightness [Not Recovered/Not Resolved]
  - Paraesthesia [Unknown]
  - Off label use [Unknown]
  - Speech disorder [Not Recovered/Not Resolved]

NARRATIVE: CASE EVENT DATE: 20191204
